FAERS Safety Report 7334324-5 (Version None)
Quarter: 2011Q1

REPORT INFORMATION
  Report Type: 
  Country: None (occurrence: None)
  Receive Date: 20110307
  Receipt Date: 20110125
  Transmission Date: 20110831
  Serious: Yes (Death)
  Sender: FDA-Public Use
  Company Number: US-TYCO HEALTHCARE/MALLINCKRODT-T201100455

PATIENT
  Age: 59 Year
  Sex: Female

DRUGS (10)
  1. FENOFIBRATE [Suspect]
     Route: 048
  2. CLONIDINE [Suspect]
     Route: 048
  3. PROMETHAZINE [Suspect]
     Route: 048
  4. HYDROCODONE/ACETAMINOPHEN [Suspect]
     Route: 048
  5. SERTRALINE [Suspect]
     Route: 048
  6. LAMOTRIGINE [Suspect]
     Route: 048
  7. TRANDOLAPRIL W/VERAPAMIL [Suspect]
     Route: 048
  8. AMLODIPINE [Suspect]
     Route: 048
  9. EZETIMIBE/SAMVASTATIN [Suspect]
     Route: 048
  10. LEVOTHYROXINE [Suspect]
     Route: 048

REACTIONS (1)
  - COMPLETED SUICIDE [None]
